FAERS Safety Report 5663372-6 (Version None)
Quarter: 2008Q1

REPORT INFORMATION
  Report Type: 
  Country: None (occurrence: None)
  Receive Date: 20080313
  Receipt Date: 20080225
  Transmission Date: 20080703
  Serious: Yes (Hospitalization)
  Sender: FDA-Public Use
  Company Number: GB-DENTSPLY-2008-0020-EUR

PATIENT
  Age: 4 Year
  Sex: Male
  Weight: 13.8 kg

DRUGS (6)
  1. XYLOCAINE [Suspect]
     Indication: TOOTH EXTRACTION
  2. SEVOFLURANE [Concomitant]
  3. ACETAMINOPHEN [Concomitant]
     Route: 054
  4. DICLOFENAC SODIUM [Concomitant]
     Route: 054
  5. HARTMAN'S SOLUTION [Concomitant]
  6. FENTANYL [Concomitant]

REACTIONS (1)
  - SINUS TACHYCARDIA [None]
